FAERS Safety Report 8389716-2 (Version None)
Quarter: 2012Q2

REPORT INFORMATION
  Report Type: 
  Country: None (occurrence: None)
  Receive Date: 20120522
  Receipt Date: 20120522
  Transmission Date: 20120825
  Serious: Yes (Other)
  Sender: FDA-Public Use
  Company Number: None

PATIENT
  Sex: Female

DRUGS (2)
  1. BUPROPION HCL [Suspect]
     Indication: MAJOR DEPRESSION
     Dosage: 300 QAM PO  2/9/09 X1 MONTH  + 8/09 X1 WK
     Route: 048
  2. BUPROPION HYDROCHLORIDE [Suspect]
     Dosage: 200 BID PO
     Route: 048
     Dates: start: 20100111, end: 20100126

REACTIONS (2)
  - HEADACHE [None]
  - THERAPEUTIC RESPONSE UNEXPECTED WITH DRUG SUBSTITUTION [None]
